FAERS Safety Report 21540587 (Version 1)
Quarter: 2022Q4

REPORT INFORMATION
  Report Type: Report from Study
  Country: US (occurrence: US)
  Receive Date: 20221102
  Receipt Date: 20221102
  Transmission Date: 20230113
  Serious: No
  Sender: FDA-Public Use
  Company Number: US-ABBVIE-4148065

PATIENT
  Sex: Female

DRUGS (2)
  1. HUMIRA [Suspect]
     Active Substance: ADALIMUMAB
     Indication: Hidradenitis
     Dosage: DAY 1?2 PENS
     Route: 058
     Dates: start: 20211006, end: 20211006
  2. HUMIRA [Suspect]
     Active Substance: ADALIMUMAB
     Dosage: DAY 15?1 PEN
     Route: 058
     Dates: start: 20211020, end: 20211020

REACTIONS (2)
  - Hidradenitis [Unknown]
  - Therapeutic product effect incomplete [Unknown]
